FAERS Safety Report 24696546 (Version 1)
Quarter: 2024Q4

REPORT INFORMATION
  Report Type: Spontaneous
  Country: US (occurrence: US)
  Receive Date: 20241204
  Receipt Date: 20241204
  Transmission Date: 20250115
  Serious: Yes (Death, Other)
  Sender: HIKMA
  Company Number: US-HIKMA PHARMACEUTICALS USA INC.-US-H14001-24-11056

PATIENT
  Age: 60 Year
  Sex: Male

DRUGS (7)
  1. ABIRATERONE [Suspect]
     Active Substance: ABIRATERONE\ABIRATERONE ACETATE
     Indication: Prostate cancer
     Dosage: UNK
     Route: 065
  2. APALUTAMIDE [Suspect]
     Active Substance: APALUTAMIDE
     Indication: Prostate cancer
     Dosage: UNK
     Route: 065
  3. DOCETAXEL [Suspect]
     Active Substance: DOCETAXEL
     Indication: Prostate cancer
     Dosage: UNK
     Route: 065
  4. ENZALUTAMIDE [Suspect]
     Active Substance: ENZALUTAMIDE
     Indication: Prostate cancer
     Dosage: UNK
     Route: 065
  5. LEUPROLIDE ACETATE [Suspect]
     Active Substance: LEUPROLIDE ACETATE
     Indication: Prostate cancer
     Dosage: UNK
     Route: 065
  6. PREDNISONE [Suspect]
     Active Substance: PREDNISONE
     Indication: Prostate cancer
     Dosage: UNK
     Route: 065
  7. RUCAPARIB [Suspect]
     Active Substance: RUCAPARIB
     Indication: Prostate cancer
     Dosage: UNK
     Route: 065

REACTIONS (1)
  - Drug ineffective [Fatal]
